FAERS Safety Report 5641019-2 (Version None)
Quarter: 2008Q1

REPORT INFORMATION
  Report Type: 
  Country: None (occurrence: None)
  Receive Date: 20080225
  Receipt Date: 20080212
  Transmission Date: 20080703
  Serious: Yes (Other)
  Sender: FDA-Public Use
  Company Number: 8029926

PATIENT

DRUGS (1)
  1. KEPPRA [Suspect]

REACTIONS (1)
  - HYPONATRAEMIA [None]
